FAERS Safety Report 9899830 (Version 3)
Quarter: 2014Q1

REPORT INFORMATION
  Report Type: Report from Study
  Country: JP (occurrence: JP)
  Receive Date: 20140214
  Receipt Date: 20140327
  Transmission Date: 20141002
  Serious: Yes (Life-Threatening, Hospitalization)
  Sender: FDA-Public Use
  Company Number: JP-UCBSA-111954

PATIENT
  Age: 67 Year
  Sex: Female
  Weight: 43.7 kg

DRUGS (8)
  1. E KEPPRA [Suspect]
     Indication: SIMPLE PARTIAL SEIZURES
     Route: 048
     Dates: start: 20130808, end: 20131216
  2. E KEPPRA [Suspect]
     Indication: SIMPLE PARTIAL SEIZURES
     Route: 048
     Dates: start: 20130722, end: 20130807
  3. FAMOTIDINE [Concomitant]
     Dosage: DAILY DOSE: 40 MG
     Route: 048
  4. DEPAKENE-R [Concomitant]
     Dosage: DAILY DOSE: 800 MG
     Route: 048
  5. LENDORMIN D [Concomitant]
     Dosage: DAILY DOSE: 0.25 MG
     Route: 048
  6. BAYASPIRIN [Concomitant]
     Dosage: DAILY DOSE: 100 MG
     Route: 048
     Dates: end: 20131216
  7. WARFARIN [Concomitant]
     Dosage: DAILY DOSE: 2.25 MG
     Route: 048
  8. APONOL [Concomitant]
     Dosage: DAILY DOSE: 40 MG
     Route: 048
     Dates: start: 20131125

REACTIONS (4)
  - Hyponatraemia [Recovered/Resolved]
  - Altered state of consciousness [Recovered/Resolved]
  - Red blood cell count decreased [Recovered/Resolved]
  - White blood cell count increased [Recovered/Resolved]
